FAERS Safety Report 10846627 (Version 2)
Quarter: 2015Q1

REPORT INFORMATION
  Report Type: Spontaneous
  Country: FR (occurrence: FR)
  Receive Date: 20150220
  Receipt Date: 20150306
  Transmission Date: 20150721
  Serious: Yes (Hospitalization)
  Sender: FDA-Public Use
  Company Number: FR-GLAXOSMITHKLINE-FR2015GSK020720

PATIENT
  Age: 75 Year
  Sex: Female

DRUGS (14)
  1. VELCADE [Suspect]
     Active Substance: BORTEZOMIB
     Indication: PLASMA CELL MYELOMA
     Dosage: 1.3 MG/M2, Z
     Route: 042
     Dates: start: 20141219, end: 20141226
  2. ALKERAN [Suspect]
     Active Substance: MELPHALAN
     Indication: PLASMA CELL MYELOMA
     Dosage: 9 MG/M2, Z
     Route: 048
     Dates: start: 20141219, end: 20141223
  3. CALCIDOSE [Concomitant]
     Active Substance: CALCIUM CARBONATE
  4. ZELITREX [Suspect]
     Active Substance: VALACYCLOVIR HYDROCHLORIDE
     Indication: PROPHYLAXIS
     Dosage: 2 UNK, 1D
     Route: 048
     Dates: start: 20141219, end: 20150105
  5. BACTRIM [Suspect]
     Active Substance: SULFAMETHOXAZOLE\TRIMETHOPRIM
     Indication: PROPHYLAXIS
     Dosage: 1 UNK, Z
     Route: 048
     Dates: start: 20141222, end: 20150102
  6. TAREG [Concomitant]
     Active Substance: VALSARTAN
  7. LASILIX [Concomitant]
     Active Substance: FUROSEMIDE
  8. KARDEGIC [Concomitant]
     Active Substance: ASPIRIN LYSINE
  9. OGASTORO [Concomitant]
     Active Substance: LANSOPRAZOLE
  10. ZALDIAR [Concomitant]
     Active Substance: ACETAMINOPHEN\TRAMADOL HYDROCHLORIDE
  11. LOVENOX [Suspect]
     Active Substance: ENOXAPARIN SODIUM
     Indication: PROPHYLAXIS
     Dosage: 4000 IU, 1D
     Route: 058
     Dates: start: 20141219, end: 20150105
  12. LIPANOR [Concomitant]
     Active Substance: CIPROFIBRATE
  13. ATARAX [Concomitant]
     Active Substance: HYDROXYZINE\HYDROXYZINE HYDROCHLORIDE
  14. RIVOTRIL [Concomitant]
     Active Substance: CLONAZEPAM

REACTIONS (1)
  - Purpura [Recovered/Resolved]

NARRATIVE: CASE EVENT DATE: 20141231
